FAERS Safety Report 21507471 (Version 1)
Quarter: 2022Q4

REPORT INFORMATION
  Report Type: Spontaneous
  Country: US (occurrence: US)
  Receive Date: 20221026
  Receipt Date: 20221026
  Transmission Date: 20230113
  Serious: No
  Sender: FDA-Public Use
  Company Number: US-MYLANLABS-2022M1113303

PATIENT
  Sex: Female
  Weight: 63.5 kg

DRUGS (1)
  1. ESTRADIOL TRANSDERMAL SYSTEM [Suspect]
     Active Substance: ESTRADIOL
     Indication: Hormone therapy
     Dosage: 0.1 MILLIGRAM, QD (ONCE WEEKLY)
     Route: 062
     Dates: end: 20220928

REACTIONS (3)
  - Application site rash [Recovered/Resolved]
  - Myalgia [Recovered/Resolved]
  - Product adhesion issue [Unknown]
